FAERS Safety Report 17583923 (Version 2)
Quarter: 2020Q3

REPORT INFORMATION
  Report Type: Spontaneous
  Country: FR (occurrence: FR)
  Receive Date: 20200326
  Receipt Date: 20200728
  Transmission Date: 20201102
  Serious: Yes (Other)
  Sender: FDA-Public Use
  Company Number: FR-ASTELLAS-2020US008031

PATIENT
  Sex: Male

DRUGS (1)
  1. XTANDI [Suspect]
     Active Substance: ENZALUTAMIDE
     Indication: PROSTATE CANCER
     Dosage: 160 MG, ONCE DAILY (4 TABLETS OF 40 MG IN THE MORNING)
     Route: 048
     Dates: start: 20150804

REACTIONS (6)
  - Ligament sprain [Recovered/Resolved]
  - Dizziness [Unknown]
  - Burning sensation [Unknown]
  - Rib fracture [Recovered/Resolved]
  - Fall [Recovered/Resolved with Sequelae]
  - Wrist fracture [Recovered/Resolved]

NARRATIVE: CASE EVENT DATE: 2018
